FAERS Safety Report 17508756 (Version 1)
Quarter: 2020Q1

REPORT INFORMATION
  Report Type: Spontaneous
  Country: DE (occurrence: DE)
  Receive Date: 20200306
  Receipt Date: 20200306
  Transmission Date: 20200409
  Serious: Yes (Other)
  Sender: FDA-Public Use
  Company Number: DE-ALK-ABELLO A/S-2020AA000753

PATIENT

DRUGS (3)
  1. AARANE                             /00082102/ [Concomitant]
     Route: 055
  2. ACARIZAX [Suspect]
     Active Substance: DERMATOPHAGOIDES FARINAE\DERMATOPHAGOIDES PTERONYSSINUS
     Indication: PRODUCT USED FOR UNKNOWN INDICATION
     Dosage: 12 SQ-HDM
     Route: 060
     Dates: start: 20200218, end: 20200227
  3. CETIRIZIN [Concomitant]
     Active Substance: CETIRIZINE HYDROCHLORIDE
     Indication: PREMEDICATION
     Dosage: 1 TAB
     Route: 048
     Dates: start: 20200118

REACTIONS (37)
  - Eructation [Recovered/Resolved]
  - Flatulence [Recovered/Resolved]
  - Tinnitus [Recovered/Resolved]
  - Burn oesophageal [Recovered/Resolved]
  - Aphthous ulcer [Recovered/Resolved]
  - Laryngeal inflammation [Not Recovered/Not Resolved]
  - Product administered to patient of inappropriate age [Recovered/Resolved]
  - Oropharyngeal pain [Recovered/Resolved]
  - Ocular hyperaemia [Recovered/Resolved]
  - Oropharyngeal pain [Recovered/Resolved]
  - Secretion discharge [Recovered/Resolved]
  - Fear [Recovered/Resolved]
  - Dyspnoea [Recovered/Resolved]
  - Musculoskeletal chest pain [Recovered/Resolved]
  - Eye pruritus [Recovered/Resolved]
  - Cough [Recovered/Resolved]
  - Gingival pain [Recovered/Resolved]
  - Off label use [Recovered/Resolved]
  - Headache [Recovered/Resolved]
  - Rhinorrhoea [Recovered/Resolved]
  - Gingival pain [Recovered/Resolved]
  - Drug monitoring procedure not performed [Recovered/Resolved]
  - Gingival pain [Recovered/Resolved]
  - Increased bronchial secretion [Recovered/Resolved]
  - Cough [Recovered/Resolved]
  - Bronchial obstruction [Recovered/Resolved]
  - Ocular hyperaemia [Recovered/Resolved]
  - Gingival discomfort [Recovered/Resolved]
  - Oral discomfort [Recovered/Resolved]
  - Chapped lips [Recovered/Resolved]
  - Cough [Recovered/Resolved]
  - Glossodynia [Recovered/Resolved]
  - Lip pain [Recovered/Resolved]
  - Lip swelling [Not Recovered/Not Resolved]
  - Chest pain [Recovered/Resolved]
  - Glossodynia [Recovered/Resolved]
  - Rhinorrhoea [Recovered/Resolved]

NARRATIVE: CASE EVENT DATE: 20200218
